FAERS Safety Report 24877649 (Version 4)
Quarter: 2025Q2

REPORT INFORMATION
  Report Type: Report from Study
  Country: US (occurrence: US)
  Receive Date: 20250123
  Receipt Date: 20250620
  Transmission Date: 20250716
  Serious: No
  Sender: SUNOVION
  Company Number: US-SUMITOMO PHARMA SWITZERLAND GMBH-2025SPA000380

PATIENT

DRUGS (28)
  1. ORGOVYX [Suspect]
     Active Substance: RELUGOLIX
     Indication: Prostate cancer
     Dosage: 360 MG, SINGLE
     Route: 048
     Dates: start: 202501, end: 202501
  2. ORGOVYX [Suspect]
     Active Substance: RELUGOLIX
     Dosage: 120 MG, QD
     Route: 048
     Dates: start: 202501
  3. GEMTESA [Suspect]
     Active Substance: VIBEGRON
     Indication: Product used for unknown indication
     Route: 065
  4. ABIRATERONE [Concomitant]
     Active Substance: ABIRATERONE
     Indication: Prostate cancer
     Route: 065
  5. AMLODIPINE [Concomitant]
     Active Substance: AMLODIPINE BESYLATE
     Route: 065
  6. ASPIRIN [Concomitant]
     Active Substance: ASPIRIN
     Route: 065
  7. ATORVASTATIN [Concomitant]
     Active Substance: ATORVASTATIN
     Route: 065
  8. CALCITRIOL [Concomitant]
     Active Substance: CALCITRIOL
     Route: 065
  9. CYCLOBENZAPRINE [Concomitant]
     Active Substance: CYCLOBENZAPRINE
     Route: 065
  10. CARVEDILOL [Concomitant]
     Active Substance: CARVEDILOL
     Route: 065
  11. DICLOFENAC SODIUM [Concomitant]
     Active Substance: DICLOFENAC SODIUM
     Route: 065
  12. DOXEPIN [Concomitant]
     Active Substance: DOXEPIN
     Route: 065
  13. FARXIGA [Concomitant]
     Active Substance: DAPAGLIFLOZIN PROPANEDIOL
     Route: 065
  14. FERROUS SULFATE [Concomitant]
     Active Substance: FERROUS SULFATE
     Route: 065
  15. GABAPENTIN [Concomitant]
     Active Substance: GABAPENTIN
     Route: 065
  16. HUMULIN R [Concomitant]
     Active Substance: INSULIN HUMAN
     Route: 065
  17. HYDRALAZINE [Concomitant]
     Active Substance: HYDRALAZINE HYDROCHLORIDE
     Route: 065
  18. HYDROCODONE BITARTRATE AND ACETAMINOPHEN [Concomitant]
     Active Substance: ACETAMINOPHEN\HYDROCODONE BITARTRATE
     Route: 065
  19. KERENDIA [Concomitant]
     Active Substance: FINERENONE
     Route: 065
  20. LISINOPRIL [Concomitant]
     Active Substance: LISINOPRIL
     Route: 065
  21. HYDROCHLOROTHIAZIDE\LOSARTAN POTASSIUM [Concomitant]
     Active Substance: HYDROCHLOROTHIAZIDE\LOSARTAN POTASSIUM
     Route: 065
  22. MORPHINE SULFATE [Concomitant]
     Active Substance: MORPHINE SULFATE
     Route: 065
  23. OXYBUTYNIN [Concomitant]
     Active Substance: OXYBUTYNIN
     Route: 065
  24. POTASSIUM CHLORIDE [Concomitant]
     Active Substance: POTASSIUM CHLORIDE
     Route: 065
  25. PREDNISONE [Concomitant]
     Active Substance: PREDNISONE
     Route: 065
  26. PROPRANOLOL [Concomitant]
     Active Substance: PROPRANOLOL HYDROCHLORIDE
     Route: 065
  27. SERTRALINE [Concomitant]
     Active Substance: SERTRALINE HYDROCHLORIDE
     Route: 065
  28. TREMFYA [Concomitant]
     Active Substance: GUSELKUMAB
     Route: 058

REACTIONS (4)
  - Dysuria [Not Recovered/Not Resolved]
  - Constipation [Unknown]
  - Hot flush [Not Recovered/Not Resolved]
  - Product dose omission issue [Unknown]

NARRATIVE: CASE EVENT DATE: 20250220
